FAERS Safety Report 4642359-6 (Version None)
Quarter: 2005Q2

REPORT INFORMATION
  Report Type: 
  Country: None (occurrence: None)
  Receive Date: 20050420
  Receipt Date: 20050406
  Transmission Date: 20051028
  Serious: Yes (Death, Congenital Anomaly)
  Sender: FDA-Public Use
  Company Number: 8010018

PATIENT

DRUGS (2)
  1. KEPPRA [Suspect]
     Dosage: TRP
     Route: 064
  2. TRIMONIL - SLOW RELEASE [Suspect]
     Dosage: TRP
     Route: 064

REACTIONS (6)
  - ABDOMINAL WALL ANOMALY [None]
  - ABORTION INDUCED [None]
  - AMENORRHOEA [None]
  - ASTROCYTOMA [None]
  - DRUG EXPOSURE DURING PREGNANCY [None]
  - FOETAL MALFORMATION [None]
